FAERS Safety Report 9993440 (Version 1)
Quarter: 2014Q1

REPORT INFORMATION
  Report Type: Spontaneous
  Country: DK (occurrence: DK)
  Receive Date: 20140310
  Receipt Date: 20140310
  Transmission Date: 20141002
  Serious: Yes (Other)
  Sender: FDA-Public Use
  Company Number: PHHY2014DK028100

PATIENT
  Age: 59 Year
  Sex: Female

DRUGS (2)
  1. ZOMETA [Suspect]
     Indication: METASTASES TO BREAST
     Dosage: 4 MG/5 ML
     Route: 042
     Dates: start: 20071001
  2. BONDRONAT [Suspect]
     Indication: METASTASES TO BREAST
     Route: 048
     Dates: start: 20090121, end: 20120329

REACTIONS (1)
  - Osteonecrosis of jaw [Recovered/Resolved]
